FAERS Safety Report 6903911-8 (Version None)
Quarter: 2010Q3

REPORT INFORMATION
  Report Type: 
  Country: None (occurrence: None)
  Receive Date: 20100804
  Receipt Date: 20090129
  Transmission Date: 20110219
  Serious: No
  Sender: FDA-Public Use
  Company Number: US-PFIZER INC-2009162926

PATIENT
  Sex: Female

DRUGS (4)
  1. LYRICA [Suspect]
     Indication: FACIAL PAIN
     Dosage: 50 MG, 4X/DAY
     Dates: start: 20060822
  2. NAPRELAN [Concomitant]
     Dosage: 375 MG, 2X/DAY
  3. FLEXERIL [Concomitant]
     Dosage: 10 MG, 3X/DAY
  4. ZETIA [Concomitant]
     Dosage: 10 MG, 1X/DAY

REACTIONS (1)
  - VISION BLURRED [None]
